FAERS Safety Report 7489571-9 (Version None)
Quarter: 2011Q2

REPORT INFORMATION
  Report Type: 
  Country: None (occurrence: None)
  Receive Date: 20110519
  Receipt Date: 20110510
  Transmission Date: 20111010
  Serious: Yes (Hospitalization)
  Sender: FDA-Public Use
  Company Number: US-BIOGENIDEC-2011BI017385

PATIENT
  Sex: Female

DRUGS (1)
  1. TYSABRI [Suspect]
     Indication: MULTIPLE SCLEROSIS
     Route: 042
     Dates: start: 20071212

REACTIONS (8)
  - RASH PAPULAR [None]
  - GASTROINTESTINAL DISORDER [None]
  - MIGRAINE [None]
  - HYPOTENSION [None]
  - CHOLELITHIASIS [None]
  - PAIN OF SKIN [None]
  - GASTROINTESTINAL INFLAMMATION [None]
  - CHILLS [None]
